FAERS Safety Report 13976979 (Version 1)
Quarter: 2017Q3

REPORT INFORMATION
  Report Type: Spontaneous
  Country: GB (occurrence: GB)
  Receive Date: 20170915
  Receipt Date: 20170915
  Transmission Date: 20171128
  Serious: Yes (Life-Threatening)
  Sender: FDA-Public Use
  Company Number: GB-ACCORD-058466

PATIENT
  Age: 74 Year
  Sex: Male
  Weight: 83 kg

DRUGS (1)
  1. CAPECITABINE ACCORD [Suspect]
     Active Substance: CAPECITABINE
     Indication: OESOPHAGEAL CARCINOMA
     Route: 048
     Dates: start: 20170730, end: 20170816

REACTIONS (5)
  - Acidosis [Recovering/Resolving]
  - Lethargy [Unknown]
  - Diarrhoea [Recovering/Resolving]
  - Off label use [Unknown]
  - Renal impairment [Recovering/Resolving]

NARRATIVE: CASE EVENT DATE: 20170730
